FAERS Safety Report 12831440 (Version 2)
Quarter: 2017Q1

REPORT INFORMATION
  Report Type: Spontaneous
  Country: US (occurrence: US)
  Receive Date: 20161008
  Receipt Date: 20170104
  Transmission Date: 20170428
  Serious: No
  Sender: FDA-Public Use
  Company Number: US-TEVA-700332USA

PATIENT
  Sex: Female

DRUGS (7)
  1. CARVEDILOL. [Concomitant]
     Active Substance: CARVEDILOL
     Indication: HYPERTENSION
  2. LISINOPRIL. [Concomitant]
     Active Substance: LISINOPRIL
  3. SYNTHROID [Concomitant]
     Active Substance: LEVOTHYROXINE SODIUM
  4. ELIQUIS [Concomitant]
     Active Substance: APIXABAN
     Indication: ATRIAL FIBRILLATION
  5. PROAIR HFA [Suspect]
     Active Substance: ALBUTEROL SULFATE
     Route: 065
     Dates: start: 2016
  6. VITAMIN D3 [Concomitant]
     Active Substance: CHOLECALCIFEROL
  7. XANAX [Concomitant]
     Active Substance: ALPRAZOLAM

REACTIONS (3)
  - Expired product administered [Unknown]
  - Drug ineffective [Unknown]
  - Asthma [Recovered/Resolved]

NARRATIVE: CASE EVENT DATE: 2016
